APPROVED DRUG PRODUCT: VASOCIDIN
Active Ingredient: PREDNISOLONE SODIUM PHOSPHATE; SULFACETAMIDE SODIUM
Strength: EQ 0.23% PHOSPHATE;10% **Federal Register determination that product was not discontinued or withdrawn for safety or effectiveness reasons**
Dosage Form/Route: SOLUTION/DROPS;OPHTHALMIC
Application: N018988 | Product #001
Applicant: NOVARTIS PHARMACEUTICALS CORP
Approved: Aug 26, 1988 | RLD: Yes | RS: No | Type: DISCN